FAERS Safety Report 15830072 (Version 1)
Quarter: 2019Q1

REPORT INFORMATION
  Report Type: Spontaneous
  Country: DE (occurrence: DE)
  Receive Date: 20190115
  Receipt Date: 20190115
  Transmission Date: 20190417
  Serious: Yes (Disabling, Other)
  Sender: FDA-Public Use
  Company Number: DE-ALLERGAN-1901673US

PATIENT
  Age: 69 Year
  Sex: Male
  Weight: 72 kg

DRUGS (5)
  1. DEX UNK [Suspect]
     Active Substance: UNSPECIFIED INGREDIENT
     Indication: SEASONAL ALLERGY
     Route: 065
  2. HYDROCORTISON [Suspect]
     Active Substance: HYDROCORTISONE
     Dosage: 10 MG, Q12H
     Route: 048
  3. HYDROCORTISON [Suspect]
     Active Substance: HYDROCORTISONE
     Dosage: 20 MG, Q12H
     Route: 048
  4. HYDROCORTISON [Suspect]
     Active Substance: HYDROCORTISONE
     Indication: SEASONAL ALLERGY
     Dosage: 100 MG, UNK
     Route: 048
  5. TRIAMCINOLON (TRIAMCINOLONE) [Suspect]
     Active Substance: TRIAMCINOLONE
     Indication: SEASONAL ALLERGY
     Dosage: 40 MG, UNK
     Route: 030

REACTIONS (4)
  - Off label use [Unknown]
  - Visual impairment [Recovered/Resolved with Sequelae]
  - Retinal oedema [Recovered/Resolved with Sequelae]
  - Retinal scar [Recovered/Resolved with Sequelae]

NARRATIVE: CASE EVENT DATE: 1986
